FAERS Safety Report 24011698 (Version 1)
Quarter: 2024Q2

REPORT INFORMATION
  Report Type: Spontaneous
  Country: US (occurrence: None)
  Receive Date: 20240625
  Receipt Date: 20240625
  Transmission Date: 20240716
  Serious: Yes (Other)
  Sender: FDA-Public Use
  Company Number: None

PATIENT
  Age: 55 Year
  Sex: 0
  Weight: 78.75 kg

DRUGS (3)
  1. CYCLOBENZAPRINE HYDROCHLORIDE [Suspect]
     Active Substance: CYCLOBENZAPRINE HYDROCHLORIDE
     Indication: Musculoskeletal stiffness
     Dosage: OTHER QUANTITY : 15 TABLET(S);?FREQUENCY : AT BEDTIME;?
     Route: 048
     Dates: start: 20040228, end: 20240625
  2. LEVETIRACETAM [Suspect]
     Active Substance: LEVETIRACETAM
     Indication: Seizure
     Dosage: OTHER QUANTITY : 1 TABLET(S);?FREQUENCY : DAILY;?
     Route: 048
     Dates: start: 20240228, end: 20240625
  3. CANNABIS SATIVA SUBSP. INDICA TOP [Concomitant]
     Active Substance: CANNABIS SATIVA SUBSP. INDICA TOP

REACTIONS (4)
  - Muscle tightness [None]
  - Neck pain [None]
  - Drug interaction [None]
  - Insomnia [None]

NARRATIVE: CASE EVENT DATE: 20240624
